FAERS Safety Report 18883052 (Version 2)
Quarter: 2021Q3

REPORT INFORMATION
  Report Type: Spontaneous
  Country: US (occurrence: US)
  Receive Date: 20210211
  Receipt Date: 20210716
  Transmission Date: 20211014
  Serious: Yes (Other)
  Sender: FDA-Public Use
  Company Number: US-TEVA-2021-US-1877207

PATIENT
  Sex: Female

DRUGS (45)
  1. CLOTRIMAZOLE/BETAMETHASONE [Suspect]
     Active Substance: BETAMETHASONE\CLOTRIMAZOLE
     Indication: STEROID THERAPY
     Dosage: 1?0.05% TWICE DAILY
     Route: 065
  2. PREDNISONE. [Suspect]
     Active Substance: PREDNISONE
     Indication: STEROID THERAPY
     Dosage: 60 MILLIGRAM DAILY; THREE TIMES A DAY FOR 4 DAYS
     Route: 065
  3. TRIAMCINOLONE [Suspect]
     Active Substance: TRIAMCINOLONE
     Dosage: TRIAMCINOLONE 0.1% TWICE DAILY EAR DROP AS REQUIRED
     Route: 050
  4. MOMETASONE/FORMOTEROL [Suspect]
     Active Substance: FORMOTEROL\MOMETASONE
     Indication: STEROID THERAPY
     Dosage: MOMETASONE/FORMOTEROL 200MCG/5MCG TWO PUFFS TWICE DAILY
     Route: 050
  5. MOMETASONE/FORMOTEROL [Suspect]
     Active Substance: FORMOTEROL\MOMETASONE
     Dosage: MOMETASONE/FORMOTEROL 200/5 [UNIT NOT STATED] TWO PUFFS TWICE DAILY
     Route: 050
  6. GABAPENTIN. [Concomitant]
     Active Substance: GABAPENTIN
     Indication: DEPRESSION
     Route: 065
  7. LEVOTHYROXINE. [Concomitant]
     Active Substance: LEVOTHYROXINE
     Indication: HYPOTHYROIDISM
     Dosage: 25 MICROGRAM DAILY;
     Route: 065
  8. POLYETHYLENE GLYCOL [Concomitant]
     Active Substance: POLYETHYLENE GLYCOLS
     Indication: CONSTIPATION
     Route: 065
     Dates: start: 2003
  9. VENLAFAXINE [Concomitant]
     Active Substance: VENLAFAXINE HYDROCHLORIDE
     Indication: DEPRESSION
     Dosage: 75 MILLIGRAM DAILY;
     Route: 065
  10. PREDNISONE. [Suspect]
     Active Substance: PREDNISONE
     Dosage: 50 MILLIGRAM DAILY;
     Route: 065
  11. TRIAMCINOLONE [Suspect]
     Active Substance: TRIAMCINOLONE
     Indication: STEROID THERAPY
     Dosage: 75 MICROGRAM DAILY; 75MCG 3 PUFFS ONCE DAILY
     Route: 050
  12. FELODIPINE. [Concomitant]
     Active Substance: FELODIPINE
     Indication: HYPERTENSION
     Route: 065
  13. ESCITALOPRAM [Concomitant]
     Active Substance: ESCITALOPRAM OXALATE
     Indication: DEPRESSION
     Dosage: 15 MILLIGRAM DAILY;
     Route: 065
  14. METHYLPREDNISOLONE. [Suspect]
     Active Substance: METHYLPREDNISOLONE
     Dosage: X1
     Route: 065
  15. PREDNISONE. [Suspect]
     Active Substance: PREDNISONE
     Route: 065
  16. PREDNISONE. [Suspect]
     Active Substance: PREDNISONE
     Dosage: 40 MILLIGRAM DAILY;
     Route: 065
  17. PREDNISONE. [Suspect]
     Active Substance: PREDNISONE
     Dosage: 20 MILLIGRAM DAILY;
     Route: 065
  18. SALMETEROL/FLUTICASONE [Suspect]
     Active Substance: FLUTICASONE PROPIONATE\SALMETEROL XINAFOATE
     Dosage: SALMETEROL/FLUTICASONE PROPIONATE 230/21 [UNIT NOT STATED] TWO PUFFS TWICE DAILY
     Route: 050
  19. SALMETEROL/FLUTICASONE [Suspect]
     Active Substance: FLUTICASONE PROPIONATE\SALMETEROL XINAFOATE
     Dosage: 500/50 [UNIT NOT STATED] ONE PUFF TWICE DAILY
     Route: 050
  20. BUSPIRONE [Concomitant]
     Active Substance: BUSPIRONE HYDROCHLORIDE
     Indication: DEPRESSION
     Route: 065
  21. LUBIPROSTONE [Concomitant]
     Active Substance: LUBIPROSTONE
     Indication: CONSTIPATION
     Route: 065
     Dates: start: 2003
  22. FLUTICASONE. [Suspect]
     Active Substance: FLUTICASONE
     Indication: STEROID THERAPY
     Dosage: 220MCG ONE TO TWO PUFFS TWICE DAILY OR AS REQUIRED
     Route: 050
  23. METHYLPREDNISOLONE. [Suspect]
     Active Substance: METHYLPREDNISOLONE
     Dosage: X4
     Route: 065
  24. PREDNISONE. [Suspect]
     Active Substance: PREDNISONE
     Route: 065
  25. PREDNISONE. [Suspect]
     Active Substance: PREDNISONE
     Dosage: PREDNISONE 40MG X 2DAY
     Route: 065
  26. PREDNISONE. [Suspect]
     Active Substance: PREDNISONE
     Dosage: 2 DOSAGE FORMS DAILY; FOR 3?5 DAYS
     Route: 065
  27. HYOSCYAMINE. [Concomitant]
     Active Substance: HYOSCYAMINE
     Indication: ABDOMINAL PAIN UPPER
     Route: 065
  28. METHYLPREDNISOLONE. [Suspect]
     Active Substance: METHYLPREDNISOLONE
     Route: 065
  29. BUDESONIDE/FORMOTEROL [Suspect]
     Active Substance: BUDESONIDE\FORMOTEROL
     Indication: STEROID THERAPY
     Dosage: BUDESONIDE/FORMOTEROL 80/4.5 [UNIT NOT STATED] TWO PUFFS TWICE DAILY
     Route: 050
  30. TRIAMCINOLONE [Suspect]
     Active Substance: TRIAMCINOLONE
     Dosage: 55 MICROGRAM DAILY; 55 MCG/ACTUATION 1?2 SPRAYS EACH NOSTRIL ONCE DAILY
     Route: 045
  31. HYDROCORTISONE. [Suspect]
     Active Substance: HYDROCORTISONE
     Indication: STEROID THERAPY
     Dosage: FORMULATION EAR DROPS
     Route: 050
  32. PANTOPRAZOLE [Concomitant]
     Active Substance: PANTOPRAZOLE
     Indication: PRODUCT USED FOR UNKNOWN INDICATION
     Route: 065
     Dates: start: 2009, end: 2018
  33. METHYLPREDNISOLONE. [Suspect]
     Active Substance: METHYLPREDNISOLONE
     Dosage: X1
     Route: 065
  34. PREDNISONE. [Suspect]
     Active Substance: PREDNISONE
     Route: 065
  35. PREDNISONE. [Suspect]
     Active Substance: PREDNISONE
     Dosage: 60 MILLIGRAM DAILY;
     Route: 065
  36. SALMETEROL/FLUTICASONE [Suspect]
     Active Substance: FLUTICASONE PROPIONATE\SALMETEROL XINAFOATE
     Dosage: 250/50 [UNIT NOT STATED] ONE PUFF TWICE DAILY
     Route: 050
  37. BUPROPION. [Concomitant]
     Active Substance: BUPROPION
     Indication: DEPRESSION
     Route: 065
  38. AMLODIPINE [Concomitant]
     Active Substance: AMLODIPINE BESYLATE
     Indication: HYPERTENSION
     Route: 065
  39. FLUTICASONE. [Suspect]
     Active Substance: FLUTICASONE
     Dosage: 100 MICROGRAM DAILY; FLUTICASONE?PROPIONATE 50MCG TWO SPRAY EACH NOSTRIL TWICE DAILY
     Route: 045
  40. PREDNISONE. [Suspect]
     Active Substance: PREDNISONE
     Dosage: 80 MILLIGRAM DAILY;
     Route: 065
     Dates: end: 2018
  41. METHYLPREDNISOLONE. [Suspect]
     Active Substance: METHYLPREDNISOLONE
     Indication: STEROID THERAPY
     Route: 065
  42. METHYLPREDNISOLONE. [Suspect]
     Active Substance: METHYLPREDNISOLONE
     Dosage: X1
     Route: 065
  43. PREDNISONE. [Suspect]
     Active Substance: PREDNISONE
     Dosage: 10 MILLIGRAM DAILY;
     Route: 065
  44. PREDNISONE. [Suspect]
     Active Substance: PREDNISONE
     Dosage: 40 MILLIGRAM DAILY; PREDNISONE 40MG ONCE DAILY FOR 3?5 DAYS
     Route: 065
  45. SALMETEROL/FLUTICASONE [Suspect]
     Active Substance: FLUTICASONE PROPIONATE\SALMETEROL XINAFOATE
     Indication: STEROID THERAPY
     Dosage: SALMETEROL/FLUTICASONE PROPIONATE 250/50 [UNIT NOT STATED] ONE PUFF TWICE DAILY
     Route: 050

REACTIONS (1)
  - Adrenal insufficiency [Not Recovered/Not Resolved]
